FAERS Safety Report 6636181-9 (Version None)
Quarter: 2010Q1

REPORT INFORMATION
  Report Type: 
  Country: None (occurrence: None)
  Receive Date: 20100316
  Receipt Date: 20100303
  Transmission Date: 20100710
  Serious: No
  Sender: FDA-Public Use
  Company Number: US-ELI_LILLY_AND_COMPANY-US200912000896

PATIENT
  Age: 85 Year
  Sex: Female

DRUGS (3)
  1. ZYPREXA [Suspect]
     Indication: PSYCHOTIC DISORDER
     Dosage: 1 D/F, UNK
     Dates: start: 20050301
  2. LEXAPRO [Concomitant]
     Dosage: 5 MG, DAILY (1/D)
  3. ARICEPT [Concomitant]
     Dosage: 10 MG, DAILY (1/D)
     Dates: start: 20050101

REACTIONS (2)
  - DYSPHAGIA [None]
  - INTENTIONAL DRUG MISUSE [None]
